FAERS Safety Report 8818166 (Version 1)
Quarter: 2012Q4

REPORT INFORMATION
  Report Type: 
  Country: GB (occurrence: GB)
  Receive Date: 20121002
  Receipt Date: 20121002
  Transmission Date: 20130627
  Serious: Yes (Other)
  Sender: FDA-Public Use
  Company Number: GB-009507513-1209GBR011863

PATIENT
  Weight: 7.8 kg

DRUGS (1)
  1. BCG LIVE [Suspect]
     Indication: PROPHYLAXIS
     Dosage: UNK UNK, Once
     Route: 023
     Dates: start: 20120315, end: 20120315

REACTIONS (1)
  - Abscess [Recovering/Resolving]
